FAERS Safety Report 7183394-6 (Version None)
Quarter: 2010Q4

REPORT INFORMATION
  Report Type: 
  Country: None (occurrence: None)
  Receive Date: 20101210
  Receipt Date: 20101201
  Transmission Date: 20110411
  Serious: Yes (Other)
  Sender: FDA-Public Use
  Company Number: 2010MA003955

PATIENT
  Age: 29 Year
  Sex: Female

DRUGS (8)
  1. DIAZEPAM [Suspect]
     Dosage: 5 MG;QD
  2. ARIPIPRAZOLE [Suspect]
     Indication: BIPOLAR DISORDER
     Dosage: 20 MG;QD
  3. CLOZARIL [Suspect]
     Dosage: 375 MG; PO
     Route: 048
  4. CLOZARIL [Suspect]
     Indication: BIPOLAR DISORDER
     Dosage: 400 MG; PO
     Route: 048
     Dates: start: 20100729
  5. CLOZARIL [Suspect]
     Indication: SCHIZOPHRENIA
     Dosage: 400 MG; PO
     Route: 048
     Dates: start: 20100729
  6. CONCERTA [Concomitant]
  7. ESCITALOPRAM [Concomitant]
  8. LITHIUM [Concomitant]

REACTIONS (3)
  - FALL [None]
  - MYOCLONUS [None]
  - URINARY INCONTINENCE [None]
